FAERS Safety Report 10590064 (Version 1)
Quarter: 2014Q4

REPORT INFORMATION
  Report Type: Spontaneous
  Country: PL (occurrence: PL)
  Receive Date: 20141118
  Receipt Date: 20141118
  Transmission Date: 20150529
  Serious: Yes (Death, Hospitalization, Other)
  Sender: FDA-Public Use
  Company Number: PHHY2014PL148215

PATIENT
  Age: 56 Year
  Sex: Male

DRUGS (2)
  1. EVEROLIMUS [Suspect]
     Active Substance: EVEROLIMUS
     Indication: METASTATIC RENAL CELL CARCINOMA
     Dosage: 10 MG, QD
     Route: 065
     Dates: start: 20120417, end: 20120705
  2. EVEROLIMUS [Suspect]
     Active Substance: EVEROLIMUS
     Dosage: 5 MG, QD
     Route: 065
     Dates: start: 20120727, end: 20121022

REACTIONS (12)
  - Pneumonitis [Unknown]
  - Lymphopenia [Unknown]
  - Metastases to liver [Unknown]
  - General physical condition abnormal [Recovering/Resolving]
  - Malignant neoplasm progression [Unknown]
  - Metastases to bone [Unknown]
  - Dyspnoea [Unknown]
  - Paralysis [Unknown]
  - Anaemia [Unknown]
  - Weight decreased [Unknown]
  - Death [Fatal]
  - Asthenia [Unknown]

NARRATIVE: CASE EVENT DATE: 201207
